FAERS Safety Report 7890132-8 (Version None)
Quarter: 2011Q4

REPORT INFORMATION
  Report Type: 
  Country: None (occurrence: None)
  Receive Date: 20111103
  Receipt Date: 20111101
  Transmission Date: 20120403
  Serious: Yes (Hospitalization)
  Sender: FDA-Public Use
  Company Number: US-ABBOTT-11P-163-0869612-00

PATIENT
  Sex: Female
  Weight: 92.162 kg

DRUGS (3)
  1. HUMIRA [Suspect]
     Indication: RHEUMATOID ARTHRITIS
     Route: 058
     Dates: start: 20090101, end: 20110401
  2. LISINOPRIL [Concomitant]
     Indication: HYPERTENSION
  3. HUMIRA [Suspect]
     Route: 058
     Dates: start: 20111019

REACTIONS (6)
  - DYSPNOEA [None]
  - PAIN [None]
  - RHEUMATOID ARTHRITIS [None]
  - MITRAL VALVE DISEASE [None]
  - PALPITATIONS [None]
  - JOINT RANGE OF MOTION DECREASED [None]
